FAERS Safety Report 15210799 (Version 2)
Quarter: 2018Q4

REPORT INFORMATION
  Report Type: Spontaneous
  Country: PT (occurrence: PT)
  Receive Date: 20180728
  Receipt Date: 20180730
  Transmission Date: 20190204
  Serious: Yes (Hospitalization, Other)
  Sender: FDA-Public Use
  Company Number: PT-ACCORD-070003

PATIENT
  Age: 65 Year
  Sex: Female

DRUGS (4)
  1. TRAZODONE [Interacting]
     Active Substance: TRAZODONE HYDROCHLORIDE
     Indication: INSOMNIA
  2. BIPERIDEN [Interacting]
     Active Substance: BIPERIDEN
     Indication: TREMOR
  3. QUETIAPINE. [Suspect]
     Active Substance: QUETIAPINE
     Indication: INSOMNIA
  4. SERTRALINE [Interacting]
     Active Substance: SERTRALINE HYDROCHLORIDE
     Indication: DEPRESSIVE SYMPTOM

REACTIONS (4)
  - Tremor [Unknown]
  - Drug interaction [Unknown]
  - Depressive symptom [Unknown]
  - Serotonin syndrome [Recovered/Resolved]
